FAERS Safety Report 9390984 (Version 1)
Quarter: 2013Q3

REPORT INFORMATION
  Report Type: Report from Study
  Country: US (occurrence: US)
  Receive Date: 20130709
  Receipt Date: 20130709
  Transmission Date: 20140515
  Serious: Yes (Other)
  Sender: FDA-Public Use
  Company Number: US-ROCHE-1246085

PATIENT
  Sex: 0

DRUGS (2)
  1. BEVACIZUMAB [Suspect]
     Indication: NEOPLASM MALIGNANT
     Route: 042
  2. VATALANIB [Suspect]
     Indication: NEOPLASM MALIGNANT
     Route: 048

REACTIONS (2)
  - Hypertension [Unknown]
  - Mucosal inflammation [Unknown]
